FAERS Safety Report 11068790 (Version 1)
Quarter: 2015Q2

REPORT INFORMATION
  Report Type: Other
  Country: US (occurrence: US)
  Receive Date: 20150427
  Receipt Date: 20150427
  Transmission Date: 20150821
  Serious: Yes (Disabling)
  Sender: FDA-Public Use
  Company Number: US-ACORDA-ACO_110843_2015

PATIENT

DRUGS (1)
  1. AMPYRA [Suspect]
     Active Substance: DALFAMPRIDINE
     Indication: PRODUCT USED FOR UNKNOWN INDICATION
     Dosage: UNK
     Route: 065

REACTIONS (7)
  - Coordination abnormal [Unknown]
  - Motor dysfunction [Unknown]
  - Ataxia [Unknown]
  - Fatigue [Unknown]
  - Speech disorder [Unknown]
  - Balance disorder [Unknown]
  - Wheelchair user [Unknown]
